FAERS Safety Report 8255265-5 (Version None)
Quarter: 2012Q2

REPORT INFORMATION
  Report Type: 
  Country: None (occurrence: None)
  Receive Date: 20120403
  Receipt Date: 20120326
  Transmission Date: 20120825
  Serious: Yes (Hospitalization)
  Sender: FDA-Public Use
  Company Number: US-ASTRAZENECA-2011SE32991

PATIENT
  Age: 63 Year
  Sex: Female

DRUGS (2)
  1. SYMBICORT [Suspect]
     Route: 055
  2. NEXIUM [Suspect]
     Route: 048

REACTIONS (5)
  - FALL [None]
  - RIB FRACTURE [None]
  - NEPHROLITHIASIS [None]
  - MALAISE [None]
  - CONCUSSION [None]
